FAERS Safety Report 5984314-X (Version None)
Quarter: 2008Q4

REPORT INFORMATION
  Report Type: 
  Country: None (occurrence: None)
  Receive Date: 20081208
  Receipt Date: 20080312
  Transmission Date: 20090506
  Serious: No
  Sender: FDA-Public Use
  Company Number: US-AMGEN-KDL265149

PATIENT
  Sex: Female
  Weight: 69.9 kg

DRUGS (5)
  1. ENBREL [Suspect]
     Indication: VASCULITIS
     Route: 058
     Dates: start: 20000201
  2. HYDROCHLOROTHIAZIDE [Concomitant]
  3. COLESTIPOL HYDROCHLORIDE [Concomitant]
  4. EFFEXOR [Concomitant]
  5. MIACALCIN [Concomitant]

REACTIONS (3)
  - ALOPECIA [None]
  - ARTHRALGIA [None]
  - BONE PAIN [None]
